FAERS Safety Report 8571940-7 (Version None)
Quarter: 2012Q3

REPORT INFORMATION
  Report Type: 
  Country: None (occurrence: None)
  Receive Date: 20120806
  Receipt Date: 20120802
  Transmission Date: 20120928
  Serious: Yes (Hospitalization, Other)
  Sender: FDA-Public Use
  Company Number: US-009507513-1106USA03840

PATIENT

DRUGS (3)
  1. FOSAMAX [Suspect]
     Dosage: 10 MG, UNK
     Route: 048
  2. FOSAMAX [Suspect]
     Dosage: 70 MG, UNK
     Route: 048
     Dates: start: 20080303
  3. FOSAMAX [Suspect]
     Indication: OSTEOPOROSIS
     Dosage: 70 MG, UNK
     Route: 048
     Dates: start: 19970101, end: 20100101

REACTIONS (11)
  - FALL [None]
  - HYPERTENSION [None]
  - HEADACHE [None]
  - FEMUR FRACTURE [None]
  - ANXIETY [None]
  - DIZZINESS [None]
  - HAEMATURIA [None]
  - TOOTH DISORDER [None]
  - DYSURIA [None]
  - SINUSITIS [None]
  - BENIGN PROSTATIC HYPERPLASIA [None]
